FAERS Safety Report 6454129-7 (Version None)
Quarter: 2009Q4

REPORT INFORMATION
  Report Type: 
  Country: None (occurrence: None)
  Receive Date: 20091124
  Receipt Date: 20091119
  Transmission Date: 20100525
  Serious: Yes (Hospitalization)
  Sender: FDA-Public Use
  Company Number: ES-MERCK-0911ESP00035

PATIENT
  Age: 27 Year
  Sex: Male

DRUGS (3)
  1. SINGULAIR [Suspect]
     Indication: ASTHMA
     Route: 048
     Dates: start: 20090101, end: 20091115
  2. SINGULAIR [Suspect]
     Indication: NASAL POLYPS
     Route: 048
     Dates: start: 20090101, end: 20091115
  3. BUDESONIDE AND FORMOTEROL FUMARATE [Concomitant]
     Indication: ASTHMA

REACTIONS (1)
  - ALLERGIC GRANULOMATOUS ANGIITIS [None]
